FAERS Safety Report 15649550 (Version 2)
Quarter: 2018Q4

REPORT INFORMATION
  Report Type: Spontaneous
  Country: US (occurrence: US)
  Receive Date: 20181122
  Receipt Date: 20181218
  Transmission Date: 20190205
  Serious: No
  Sender: FDA-Public Use
  Company Number: US-ASTRAZENECA-2018SF46564

PATIENT
  Age: 41 Year
  Sex: Male
  Weight: 159 kg

DRUGS (1)
  1. PULMICORT FLEXHALER [Suspect]
     Active Substance: BUDESONIDE
     Indication: ASTHMA
     Dosage: 90 MCG 60 METERED DOSE INHALER 2 PUFFS PER DAY
     Route: 055
     Dates: start: 20181023, end: 20181106

REACTIONS (5)
  - Dyspnoea [Unknown]
  - Product dose omission [Unknown]
  - Product administration error [Unknown]
  - Device malfunction [Recovered/Resolved with Sequelae]
  - Asthma [Unknown]

NARRATIVE: CASE EVENT DATE: 2018
